FAERS Safety Report 19009906 (Version 3)
Quarter: 2021Q2

REPORT INFORMATION
  Report Type: Spontaneous
  Country: JP (occurrence: JP)
  Receive Date: 20210316
  Receipt Date: 20210421
  Transmission Date: 20210717
  Serious: Yes (Death, Life-Threatening)
  Sender: FDA-Public Use
  Company Number: JP-JAZZ-2021-JP-003939

PATIENT
  Age: 55 Year
  Sex: Male
  Weight: 53.2 kg

DRUGS (1)
  1. DEFITELIO [Suspect]
     Active Substance: DEFIBROTIDE SODIUM
     Indication: VENOOCCLUSIVE LIVER DISEASE
     Dosage: 25 MG/KG
     Route: 042
     Dates: start: 20210218, end: 20210308

REACTIONS (1)
  - Blood bilirubin increased [Not Recovered/Not Resolved]
